FAERS Safety Report 12855218 (Version 5)
Quarter: 2016Q4

REPORT INFORMATION
  Report Type: Spontaneous
  Country: JP (occurrence: JP)
  Receive Date: 20161017
  Receipt Date: 20161130
  Transmission Date: 20170207
  Serious: Yes (Hospitalization)
  Sender: FDA-Public Use
  Company Number: JP-PFIZER INC-2016476504

PATIENT
  Age: 79 Year
  Sex: Female
  Weight: 50 kg

DRUGS (8)
  1. PROPOFOL. [Suspect]
     Active Substance: PROPOFOL
     Indication: SEDATIVE THERAPY
     Dosage: 2050 MG, DAILY
     Route: 041
     Dates: start: 20160122, end: 20160122
  2. NALOXONE [Concomitant]
     Active Substance: NALOXONE
     Indication: PROPHYLAXIS
     Dosage: 350 UG, DAILY
     Route: 041
     Dates: start: 20160122, end: 20160122
  3. REMIFENTANIL [Concomitant]
     Active Substance: REMIFENTANIL
     Indication: SEDATIVE THERAPY
     Dosage: 7.5 MG, DAILY
     Route: 041
     Dates: start: 20160122, end: 20160122
  4. PRECEDEX [Suspect]
     Active Substance: DEXMEDETOMIDINE HYDROCHLORIDE
     Dosage: 0.4 MCG/KG/H, UNK
     Route: 041
     Dates: start: 20160122, end: 20160122
  5. NALOXONE [Concomitant]
     Active Substance: NALOXONE
     Indication: SPINAL CORD ISCHAEMIA
  6. PRECEDEX [Suspect]
     Active Substance: DEXMEDETOMIDINE HYDROCHLORIDE
     Indication: SEDATION
     Dosage: 160 UG, DAILY (0.8 UG/KG/H)
     Route: 041
     Dates: start: 20160122, end: 20160122
  7. NALOXONE [Concomitant]
     Active Substance: NALOXONE
     Indication: SEDATIVE THERAPY
  8. KETALAR [Concomitant]
     Active Substance: KETAMINE HYDROCHLORIDE
     Indication: SEDATIVE THERAPY
     Dosage: 350 MG, DAILY
     Route: 041
     Dates: start: 20160122, end: 20160122

REACTIONS (1)
  - Transcranial electrical motor evoked potential monitoring abnormal [Recovered/Resolved]

NARRATIVE: CASE EVENT DATE: 20160122
